FAERS Safety Report 6676494-8 (Version None)
Quarter: 2010Q2

REPORT INFORMATION
  Report Type: 
  Country: None (occurrence: None)
  Receive Date: 20100412
  Receipt Date: 20100408
  Transmission Date: 20101027
  Serious: Yes (Hospitalization)
  Sender: FDA-Public Use
  Company Number: PHHO2010NL00970

PATIENT
  Weight: 76 kg

DRUGS (4)
  1. MYCOPHENOLIC ACID [Suspect]
     Indication: NEPHROPATHY
     Dosage: 1440 MG
     Route: 048
     Dates: start: 20060513
  2. NEORAL [Suspect]
     Indication: NEPHROPATHY
     Dosage: 300 MG
     Route: 048
     Dates: start: 20060513
  3. NO TREATMENT RECEIVED NOMED [Suspect]
     Indication: NEPHROPATHY
     Dosage: NO TREATMENT
  4. PREDNISONE TAB [Suspect]
     Indication: NEPHROPATHY
     Dosage: 10 MG
     Route: 048
     Dates: start: 20060513

REACTIONS (6)
  - BLADDER CATHETERISATION [None]
  - DYSURIA [None]
  - ESCHERICHIA INFECTION [None]
  - POSTOPERATIVE RENAL FAILURE [None]
  - URINARY RETENTION [None]
  - UROSEPSIS [None]
